FAERS Safety Report 25255405 (Version 1)
Quarter: 2025Q2

REPORT INFORMATION
  Report Type: Spontaneous
  Country: US (occurrence: US)
  Receive Date: 20250430
  Receipt Date: 20250430
  Transmission Date: 20250716
  Serious: Yes (Life-Threatening, Hospitalization)
  Sender: MYLAN
  Company Number: US-MYLANLABS-2025M1037292

PATIENT
  Sex: Female

DRUGS (2)
  1. EPINEPHRINE [Suspect]
     Active Substance: EPINEPHRINE
     Indication: Endodontic procedure
  2. ARTICAINE [Suspect]
     Active Substance: ARTICAINE
     Indication: Endodontic procedure

REACTIONS (11)
  - Local anaesthetic systemic toxicity [Recovering/Resolving]
  - Cardiac arrest [Recovering/Resolving]
  - Mydriasis [Recovering/Resolving]
  - Seizure like phenomena [Recovering/Resolving]
  - Pulseless electrical activity [Recovering/Resolving]
  - Torsade de pointes [Recovering/Resolving]
  - Cardiogenic shock [Recovering/Resolving]
  - Atrial fibrillation [Recovering/Resolving]
  - Neurologic neglect syndrome [Recovering/Resolving]
  - Arrhythmia [Recovering/Resolving]
  - Ventricular fibrillation [Recovering/Resolving]
